FAERS Safety Report 10721077 (Version 1)
Quarter: 2015Q1

REPORT INFORMATION
  Report Type: Spontaneous
  Country: NO (occurrence: NO)
  Receive Date: 20150119
  Receipt Date: 20150119
  Transmission Date: 20150721
  Serious: Yes (Death)
  Sender: FDA-Public Use
  Company Number: NO-ASPEN PHARMA TRADING LIMITED US-AG-2015-000164

PATIENT

DRUGS (4)
  1. MYLERAN [Suspect]
     Active Substance: BUSULFAN
     Indication: STEM CELL TRANSPLANT
     Dosage: TWO FIRST DOSES WERE FIXED (APPROXIMATELY 1?MG/KG), FOLLOWED BY DOSE-ADJUSTMENTS TO OBTAIN AN AVERAG
     Route: 048
  2. SENDOXAN [Suspect]
     Active Substance: CYCLOPHOSPHAMIDE
     Indication: STEM CELL TRANSPLANT
     Route: 042
  3. METHOTREXATE [Concomitant]
     Active Substance: METHOTREXATE
     Indication: PROPHYLAXIS AGAINST GRAFT VERSUS HOST DISEASE
     Dosage: ON DAY 1, 3, 6, AND 11
     Route: 065
  4. PHENYTOIN. [Concomitant]
     Active Substance: PHENYTOIN
     Indication: PROPHYLAXIS
     Route: 065

REACTIONS (1)
  - Haemorrhage [Fatal]
